FAERS Safety Report 24030320 (Version 1)
Quarter: 2024Q2

REPORT INFORMATION
  Report Type: Spontaneous
  Country: CN (occurrence: CN)
  Receive Date: 20240628
  Receipt Date: 20240628
  Transmission Date: 20240716
  Serious: Yes (Other)
  Sender: FDA-Public Use
  Company Number: None

PATIENT
  Age: 36 Year
  Sex: Female
  Weight: 54 kg

DRUGS (3)
  1. MANNITOL [Suspect]
     Active Substance: MANNITOL
     Indication: Vertigo
     Dosage: (DOSAGE FORM: INJECTION) 100 MILLILITER ONCE DAILY
     Route: 041
     Dates: start: 20240618, end: 20240618
  2. SODIUM CHLORIDE [Suspect]
     Active Substance: SODIUM CHLORIDE
     Indication: Medication dilution
     Dosage: 100 ML, USED TO DILUTE DEXAMETHASONE SODIUM PHOSPHATE 5 MG
     Route: 041
     Dates: start: 20240618, end: 20240618
  3. DEXAMETHASONE SODIUM PHOSPHATE [Suspect]
     Active Substance: DEXAMETHASONE PHOSPHATE\DEXAMETHASONE SODIUM PHOSPHATE
     Dosage: 5 MG DILUTED WITH 100 ML OF 0.9% SODIUM CHLORIDE
     Route: 041
     Dates: start: 20240618, end: 20240618

REACTIONS (14)
  - Dermatitis allergic [Recovering/Resolving]
  - Headache [Recovering/Resolving]
  - Dysphonia [Unknown]
  - Pallor [Recovered/Resolved]
  - Dyspnoea [Unknown]
  - Syncope [Recovering/Resolving]
  - Loss of consciousness [Recovering/Resolving]
  - Muscular weakness [Recovered/Resolved]
  - Pain of skin [Recovering/Resolving]
  - Asthenia [Recovered/Resolved]
  - Paraesthesia [Recovering/Resolving]
  - Feeling hot [Recovering/Resolving]
  - Rash erythematous [Recovering/Resolving]
  - Erythema [Unknown]

NARRATIVE: CASE EVENT DATE: 20240618
